FAERS Safety Report 5605653-8 (Version None)
Quarter: 2008Q1

REPORT INFORMATION
  Report Type: 
  Country: None (occurrence: None)
  Receive Date: 20080123
  Receipt Date: 20080115
  Transmission Date: 20080703
  Serious: Yes (Hospitalization)
  Sender: FDA-Public Use
  Company Number: GXKR2008TR00811

PATIENT
  Age: 25 Year
  Sex: Female

DRUGS (1)
  1. SULFASALAZINE [Suspect]
     Indication: COLITIS ULCERATIVE
     Dosage: 2000 MG/DAY,

REACTIONS (8)
  - FACIAL PALSY [None]
  - HEADACHE [None]
  - INTRACRANIAL PRESSURE INCREASED [None]
  - OCULOGYRIC CRISIS [None]
  - PAPILLOEDEMA [None]
  - VISION BLURRED [None]
  - VISUAL ACUITY REDUCED [None]
  - VISUAL FIELD DEFECT [None]
